FAERS Safety Report 5934917-3 (Version None)
Quarter: 2008Q4

REPORT INFORMATION
  Report Type: 
  Country: None (occurrence: None)
  Receive Date: 20081027
  Receipt Date: 20081010
  Transmission Date: 20090506
  Serious: Yes (Hospitalization, Other)
  Sender: FDA-Public Use
  Company Number: 2006US001395

PATIENT
  Age: 19 Year
  Sex: Male

DRUGS (8)
  1. PROGRAF [Suspect]
     Indication: PROPHYLAXIS AGAINST TRANSPLANT REJECTION
     Dates: start: 20050525
  2. DACLIXIMAB(DACLIZUMAB) [Suspect]
     Indication: RENAL TRANSPLANT
     Dosage: 70 MG, TOTAL DOSE, IV NOS
     Route: 042
     Dates: start: 20050329, end: 20050329
  3. NU-IRON (POLYSACCHARIDE-IRON COMPLEX) [Concomitant]
  4. SEPTRA [Concomitant]
  5. SINGULAIR [Concomitant]
  6. NORVASC [Concomitant]
  7. PREVACID [Concomitant]
  8. ASPIRIN [Concomitant]

REACTIONS (3)
  - BACTERIAL PYELONEPHRITIS [None]
  - HYPOPHAGIA [None]
  - KLEBSIELLA INFECTION [None]
